FAERS Safety Report 6683328-4 (Version None)
Quarter: 2010Q2

REPORT INFORMATION
  Report Type: 
  Country: None (occurrence: None)
  Receive Date: 20100415
  Receipt Date: 20100402
  Transmission Date: 20101027
  Serious: Yes (Other)
  Sender: FDA-Public Use
  Company Number: PHHY2010US21210

PATIENT
  Sex: Female

DRUGS (10)
  1. ZOMETA [Suspect]
  2. SYNTHROID [Concomitant]
  3. COD-LIVER OIL [Concomitant]
  4. VITAMIN A AND D [Concomitant]
  5. CALCIUM [Concomitant]
  6. VITAMIN B6 [Concomitant]
     Dosage: 100 MG, UNK
  7. FORTICAL [Concomitant]
     Dosage: 3.7 ML, UNK
  8. MIACALCIN [Concomitant]
  9. MIRALAX [Concomitant]
  10. PROCHLORPERAZINE [Concomitant]
     Dosage: 10 MG/ 325 MG

REACTIONS (8)
  - DYSURIA [None]
  - FRACTURE [None]
  - HYPOAESTHESIA [None]
  - MUSCULOSKELETAL STIFFNESS [None]
  - NEOPLASM RECURRENCE [None]
  - NEUROPATHY PERIPHERAL [None]
  - OVARIAN CANCER METASTATIC [None]
  - PAIN [None]
